FAERS Safety Report 25470991 (Version 4)
Quarter: 2025Q3

REPORT INFORMATION
  Report Type: Spontaneous
  Country: EU (occurrence: EU)
  Receive Date: 20250624
  Receipt Date: 20250926
  Transmission Date: 20251021
  Serious: Yes (Life-Threatening, Hospitalization, Other)
  Sender: AUROBINDO
  Company Number: EU-Abdi Farma-ABD202506-000154

PATIENT
  Age: 15 Year
  Sex: Female
  Weight: 50 kg

DRUGS (2)
  1. DEFERASIROX [Suspect]
     Active Substance: DEFERASIROX
     Indication: Sickle cell disease
     Dosage: 1080 MILLIGRAM, ONCE A DAY (A DAILY DOSE OF 1080MG OF ORAL DFR (20MG/KG))
     Route: 048
     Dates: start: 20230705, end: 20230708
  2. DEFERASIROX [Suspect]
     Active Substance: DEFERASIROX
     Indication: Transfusion
     Dosage: 1080 MILLIGRAM, ONCE A DAY (A DAILY DOSE OF 1080MG OF ORAL DFR (20MG/KG))
     Route: 048

REACTIONS (23)
  - Hepatic encephalopathy [Recovered/Resolved]
  - Hyperammonaemic encephalopathy [Recovered/Resolved]
  - Metabolic acidosis [Recovered/Resolved]
  - Hepatic failure [Recovered/Resolved]
  - Renal failure [Recovered/Resolved]
  - Encephalopathy [Recovered/Resolved]
  - Mydriasis [Recovered/Resolved]
  - Nuchal rigidity [Recovered/Resolved]
  - Seizure [Recovered/Resolved]
  - Acidosis [Recovered/Resolved]
  - Brain oedema [Recovered/Resolved]
  - Nausea [Recovered/Resolved]
  - Pneumonia staphylococcal [Recovered/Resolved]
  - Sepsis [Recovered/Resolved]
  - Pyrexia [Recovered/Resolved]
  - Cytotoxic oedema [Recovered/Resolved]
  - Vomiting [Recovered/Resolved]
  - Blood creatinine increased [Recovered/Resolved]
  - Coagulopathy [Recovered/Resolved]
  - Hepatic function abnormal [Recovered/Resolved]
  - Hyperammonaemia [Recovered/Resolved]
  - Hypocalcaemia [Recovered/Resolved]
  - Inflammatory marker increased [Recovered/Resolved]

NARRATIVE: CASE EVENT DATE: 20230101
